FAERS Safety Report 21954252 (Version 1)
Quarter: 2023Q1

REPORT INFORMATION
  Report Type: Report from Study
  Country: US (occurrence: US)
  Receive Date: 20230204
  Receipt Date: 20230204
  Transmission Date: 20230418
  Serious: No
  Sender: FDA-Public Use
  Company Number: US-BIOGEN-2022BI01097524

PATIENT
  Age: 46 Year
  Sex: Female

DRUGS (7)
  1. DALFAMPRIDINE [Suspect]
     Active Substance: DALFAMPRIDINE
     Indication: Product used for unknown indication
     Dosage: UNK
     Route: 065
  2. PLEGRIDY [Suspect]
     Active Substance: PEGINTERFERON BETA-1A
     Indication: Multiple sclerosis
     Dosage: 63 MICROGRAM, QD
     Route: 058
     Dates: start: 20220213
  3. PLEGRIDY [Suspect]
     Active Substance: PEGINTERFERON BETA-1A
     Dosage: INJECT 1 (63 MCG) SUBCUTANEOUSLY ON DAY 1, AND INJECT 1 (94 MCG) ON DAY 15
     Route: 058
  4. LAMOTRIGINE [Concomitant]
     Active Substance: LAMOTRIGINE
     Indication: Product used for unknown indication
     Dosage: UNK
     Route: 065
  5. VITAMIN D3 [Concomitant]
     Active Substance: CHOLECALCIFEROL
     Indication: Product used for unknown indication
     Dosage: UNK
     Route: 065
  6. VITAMIN B12 [Concomitant]
     Active Substance: CYANOCOBALAMIN
     Indication: Product used for unknown indication
     Dosage: UNK
     Route: 065
  7. ALPHA LIPOIC ACID [Concomitant]
     Active Substance: .ALPHA.-LIPOIC ACID
     Indication: Product used for unknown indication
     Dosage: UNK
     Route: 065

REACTIONS (10)
  - Chest discomfort [Recovered/Resolved]
  - Injection site urticaria [Not Recovered/Not Resolved]
  - Injection site reaction [Unknown]
  - Influenza like illness [Unknown]
  - Injection site warmth [Not Recovered/Not Resolved]
  - Injection site erythema [Not Recovered/Not Resolved]
  - Muscle spasms [Unknown]
  - Muscle tightness [Unknown]
  - Band sensation [Unknown]
  - Nausea [Unknown]

NARRATIVE: CASE EVENT DATE: 20220213
